FAERS Safety Report 10704704 (Version 1)
Quarter: 2015Q1

REPORT INFORMATION
  Report Type: Spontaneous
  Country: US (occurrence: None)
  Receive Date: 20150109
  Receipt Date: 20150109
  Transmission Date: 20150721
  Serious: No
  Sender: FDA-Public Use
  Company Number: None

PATIENT
  Age: 67 Year
  Sex: Female
  Weight: 64.41 kg

DRUGS (4)
  1. SODIUM BICARB [Concomitant]
  2. PRACTI-PRODUCTS [Suspect]
     Active Substance: UNSPECIFIED INGREDIENT
     Indication: ANAESTHESIA PROCEDURE
     Route: 058
     Dates: start: 20141208, end: 20141208
  3. EPINEPHRINE. [Concomitant]
     Active Substance: EPINEPHRINE
  4. LIDOCAINE. [Concomitant]
     Active Substance: LIDOCAINE

REACTIONS (1)
  - Wrong drug administered [None]

NARRATIVE: CASE EVENT DATE: 20141208
